FAERS Safety Report 23368934 (Version 1)
Quarter: 2024Q1

REPORT INFORMATION
  Report Type: Report from Study
  Country: US (occurrence: None)
  Receive Date: 20240105
  Receipt Date: 20240105
  Transmission Date: 20240410
  Serious: Yes (Other)
  Sender: FDA-Public Use
  Company Number: 2024A000816

PATIENT
  Sex: Male

DRUGS (1)
  1. CALQUENCE [Suspect]
     Active Substance: ACALABRUTINIB
     Indication: Chronic lymphocytic leukaemia
     Route: 048
     Dates: start: 201907

REACTIONS (7)
  - Acrochordon [Unknown]
  - Precancerous cells present [Unknown]
  - Asthenia [Unknown]
  - Vision blurred [Unknown]
  - Oral herpes [Unknown]
  - Hot flush [Unknown]
  - Product dose omission issue [Unknown]
